FAERS Safety Report 7558809-1 (Version None)
Quarter: 2011Q2

REPORT INFORMATION
  Report Type: 
  Country: None (occurrence: None)
  Receive Date: 20110613
  Receipt Date: 20110601
  Transmission Date: 20111010
  Serious: Yes (Other)
  Sender: FDA-Public Use
  Company Number: OSCN-NO-1106S-0146

PATIENT
  Age: 50 Year
  Sex: Male

DRUGS (1)
  1. OMNISCAN [Suspect]
     Indication: PRODUCT USED FOR UNKNOWN INDICATION
     Dosage: 15 ML, SINGLE DOSE, INTRAVENOUS
     Route: 042
     Dates: start: 20110530, end: 20110530

REACTIONS (2)
  - HAEMATEMESIS [None]
  - VOMITING [None]
